FAERS Safety Report 10171946 (Version 1)
Quarter: 2014Q2

REPORT INFORMATION
  Report Type: Spontaneous
  Country: US (occurrence: US)
  Receive Date: 20140515
  Receipt Date: 20140515
  Transmission Date: 20141212
  Serious: No
  Sender: FDA-Public Use
  Company Number: US-PFIZER INC-2014129587

PATIENT
  Age: 72 Year
  Sex: Male
  Weight: 72.56 kg

DRUGS (2)
  1. AMLODIPINE BESILATE [Suspect]
     Dosage: 5 MG, 2X/DAY
     Dates: start: 2012
  2. HYDROCHLOROTHIAZIDE [Concomitant]
     Dosage: 5 MG, UNK

REACTIONS (1)
  - Malaise [Unknown]
